FAERS Safety Report 16416096 (Version 2)
Quarter: 2020Q2

REPORT INFORMATION
  Report Type: Spontaneous
  Country: US (occurrence: US)
  Receive Date: 20190611
  Receipt Date: 20200604
  Transmission Date: 20200713
  Serious: No
  Sender: FDA-Public Use
  Company Number: US-JUBILANT CADISTA PHARMACEUTICALS-2019JUB00016

PATIENT
  Sex: Female
  Weight: 55.33 kg

DRUGS (5)
  1. SPIRONOLACTONE. [Suspect]
     Active Substance: SPIRONOLACTONE
     Dosage: 100 MG, 2X/DAY
     Route: 048
     Dates: end: 20190318
  2. VITAMIN C [Concomitant]
     Active Substance: ASCORBIC ACID
  3. SPIRONOLACTONE. [Suspect]
     Active Substance: SPIRONOLACTONE
     Indication: ALOPECIA
     Dosage: 100 MG, 2X/DAY
     Route: 048
  4. SPIRONOLACTONE. [Suspect]
     Active Substance: SPIRONOLACTONE
     Indication: ALOPECIA
     Dosage: UNK
     Dates: end: 2019
  5. SPIRONOLACTONE. [Suspect]
     Active Substance: SPIRONOLACTONE
     Dosage: UNK
     Dates: start: 2019

REACTIONS (8)
  - Blood potassium abnormal [Unknown]
  - Abdominal discomfort [Recovered/Resolved]
  - Blood magnesium abnormal [Unknown]
  - Extra dose administered [Recovered/Resolved]
  - Off label use [Recovered/Resolved]
  - Peripheral swelling [Unknown]
  - Anxiety [Recovering/Resolving]
  - Miosis [Recovering/Resolving]

NARRATIVE: CASE EVENT DATE: 2019
